FAERS Safety Report 19124218 (Version 1)
Quarter: 2021Q2

REPORT INFORMATION
  Report Type: Spontaneous
  Country: IT (occurrence: IT)
  Receive Date: 20210412
  Receipt Date: 20210412
  Transmission Date: 20210717
  Serious: Yes (Death, Hospitalization, Other)
  Sender: FDA-Public Use
  Company Number: IT-IPSEN BIOPHARMACEUTICALS, INC.-2021-09131

PATIENT
  Age: 73 Year
  Sex: Male

DRUGS (3)
  1. LANREOTIDE ACETATE [Suspect]
     Active Substance: LANREOTIDE ACETATE
     Indication: METASTASES TO ADRENALS
     Route: 065
  2. LANREOTIDE ACETATE [Suspect]
     Active Substance: LANREOTIDE ACETATE
     Indication: OFF LABEL USE
  3. LANREOTIDE ACETATE [Suspect]
     Active Substance: LANREOTIDE ACETATE
     Indication: PHAEOCHROMOCYTOMA
     Route: 065

REACTIONS (5)
  - Phaeochromocytoma [Fatal]
  - Off label use [Unknown]
  - Metastases to liver [Unknown]
  - Metastases to lung [Unknown]
  - Drug ineffective for unapproved indication [Unknown]
